FAERS Safety Report 9648364 (Version 4)
Quarter: 2013Q4

REPORT INFORMATION
  Report Type: Report from Study
  Country: CA (occurrence: CA)
  Receive Date: 20131028
  Receipt Date: 20131122
  Transmission Date: 20140711
  Serious: Yes (Hospitalization, Other)
  Sender: FDA-Public Use
  Company Number: CA-BAYER-2013-112939

PATIENT
  Age: 75 Year
  Sex: Female

DRUGS (8)
  1. STIVARGA [Suspect]
     Indication: COLORECTAL CANCER METASTATIC
     Dosage: 160 MG, QD
     Route: 048
     Dates: start: 20130917, end: 20130927
  2. STIVARGA [Suspect]
     Indication: COLORECTAL CANCER METASTATIC
     Dosage: 40 MG, QD
     Route: 048
     Dates: start: 20130917
  3. ASA [Concomitant]
     Dosage: UNK
  4. FELODIPINE [Concomitant]
     Dosage: UNK
  5. OXAZEPAM [Concomitant]
     Dosage: UNK
  6. SLOW-K [Concomitant]
     Dosage: UNK
  7. ROSUVASTATIN [Concomitant]
     Dosage: UNK
  8. INDAPAMIDE [Concomitant]
     Dosage: UNK

REACTIONS (18)
  - Dyspnoea [Recovering/Resolving]
  - Pyrexia [Recovering/Resolving]
  - Asthenia [Recovering/Resolving]
  - Rash macular [Recovering/Resolving]
  - Urinary tract infection [None]
  - Blood potassium decreased [None]
  - Blood pressure increased [None]
  - Feeling hot [None]
  - Headache [Recovered/Resolved]
  - Fatigue [None]
  - Hypertension [None]
  - Rash [None]
  - Cough [None]
  - Pain [None]
  - Pruritus [None]
  - Throat tightness [None]
  - Chills [None]
  - Rash [None]
